FAERS Safety Report 14248958 (Version 2)
Quarter: 2017Q4

REPORT INFORMATION
  Report Type: Spontaneous
  Country: CL (occurrence: CL)
  Receive Date: 20171204
  Receipt Date: 20171206
  Transmission Date: 20180321
  Serious: Yes (Death, Other)
  Sender: FDA-Public Use
  Company Number: CL-ALLERGAN-1768699US

PATIENT
  Age: 26 Year
  Sex: Male

DRUGS (4)
  1. CEFTAZIDIME;AVIBACTAM - BP [Suspect]
     Active Substance: AVIBACTAM SODIUM\CEFTAZIDIME
     Indication: BRAIN ABSCESS
     Dosage: 2.5 G, TID
     Route: 042
     Dates: start: 20171028, end: 20171028
  2. CEFTAZIDIME;AVIBACTAM - BP [Suspect]
     Active Substance: AVIBACTAM SODIUM\CEFTAZIDIME
     Indication: CNS VENTRICULITIS
  3. FENITOINA                          /00017401/ [Concomitant]
  4. RANITIDINE BISMUTH CITRATE [Concomitant]
     Active Substance: RANITIDINE BISMUTH CITRATE

REACTIONS (7)
  - Off label use [Unknown]
  - Drug ineffective [Unknown]
  - Intracranial pressure increased [Fatal]
  - Death [Fatal]
  - Ependymoma [Fatal]
  - Nervous system disorder [Unknown]
  - Brain oedema [Fatal]

NARRATIVE: CASE EVENT DATE: 20171122
